FAERS Safety Report 4521818-0 (Version None)
Quarter: 2004Q4

REPORT INFORMATION
  Report Type: 
  Country: None (occurrence: None)
  Receive Date: 20041208
  Receipt Date: 20041208
  Transmission Date: 20050328
  Serious: Yes (Hospitalization)
  Sender: FDA-Public Use
  Company Number: None

PATIENT
  Age: 71 Year
  Sex: Male
  Weight: 66 kg

DRUGS (2)
  1. VANCOMYCIN [Suspect]
     Indication: ENDOCARDITIS
     Dosage: 1000 MG   INTRAVENOU
     Route: 042
     Dates: start: 20041106, end: 20041218
  2. VANCOMYCIN [Suspect]
     Indication: STAPHYLOCOCCAL INFECTION
     Dosage: 1000 MG   INTRAVENOU
     Route: 042
     Dates: start: 20041106, end: 20041218

REACTIONS (1)
  - DIARRHOEA [None]
